FAERS Safety Report 7254385-1 (Version None)
Quarter: 2011Q1

REPORT INFORMATION
  Report Type: 
  Country: None (occurrence: None)
  Receive Date: 20110129
  Receipt Date: 20100409
  Transmission Date: 20110831
  Serious: No
  Sender: FDA-Public Use
  Company Number: US-ABBOTT-10P-163-0638282-00

PATIENT
  Sex: Female

DRUGS (4)
  1. HUMIRA [Suspect]
     Indication: RHEUMATOID ARTHRITIS
     Dates: start: 20091201
  2. RANATIDINE [Concomitant]
     Indication: PROPHYLAXIS AGAINST GASTROINTESTINAL ULCER
  3. ATENOLOL [Concomitant]
     Indication: HYPERTENSION
  4. TRAMADOL HCL [Concomitant]
     Indication: ARTHRALGIA

REACTIONS (2)
  - GASTROENTERITIS VIRAL [None]
  - URINARY TRACT INFECTION [None]
